FAERS Safety Report 25989601 (Version 1)
Quarter: 2025Q4

REPORT INFORMATION
  Report Type: Spontaneous
  Country: US (occurrence: None)
  Receive Date: 20251031
  Receipt Date: 20251031
  Transmission Date: 20260118
  Serious: Yes (Hospitalization)
  Sender: FDA-CTU
  Company Number: None

PATIENT
  Age: 74 Year
  Sex: Female

DRUGS (2)
  1. NUPLAZID [Suspect]
     Active Substance: PIMAVANSERIN TARTRATE
     Indication: Parkinson^s disease psychosis
     Dosage: FREQUENCY : DAILY;?
     Route: 048
     Dates: start: 20241223
  2. DEVICE [Suspect]
     Active Substance: DEVICE

REACTIONS (9)
  - Wrong technique in device usage process [None]
  - Pain [None]
  - Complication associated with device [None]
  - Thrombosis in device [None]
  - Unresponsive to stimuli [None]
  - Renal failure [None]
  - Haemorrhage [None]
  - Sepsis [None]
  - Therapy interrupted [None]

NARRATIVE: CASE EVENT DATE: 20251018
